FAERS Safety Report 17808377 (Version 4)
Quarter: 2023Q2

REPORT INFORMATION
  Report Type: Spontaneous
  Country: US (occurrence: US)
  Receive Date: 20200520
  Receipt Date: 20230614
  Transmission Date: 20230722
  Serious: Yes (Disabling, Other)
  Sender: FDA-Public Use
  Company Number: US-BIOMARINAP-US-2020-130138

PATIENT

DRUGS (2)
  1. LARONIDASE [Suspect]
     Active Substance: LARONIDASE
     Indication: Mucopolysaccharidosis I
     Dosage: 14.5 MG, QW
     Route: 042
     Dates: start: 20040921
  2. LARONIDASE [Suspect]
     Active Substance: LARONIDASE
     Dosage: 14.5 MG, QW
     Route: 042
     Dates: start: 20220718

REACTIONS (13)
  - Intellectual disability [Not Recovered/Not Resolved]
  - Hypoacusis [Recovered/Resolved]
  - Corneal opacity [Unknown]
  - Gait disturbance [Unknown]
  - Visual impairment [Unknown]
  - Weight increased [Not Recovered/Not Resolved]
  - Visual impairment [Recovered/Resolved]
  - Scoliosis surgery [Recovered/Resolved]
  - Hernia repair [Recovered/Resolved]
  - Ear tube insertion [Recovered/Resolved]
  - Adenotonsillectomy [Recovered/Resolved]
  - Spinal fusion surgery [Recovered/Resolved]
  - Dental cleaning [Recovered/Resolved]

NARRATIVE: CASE EVENT DATE: 20050101
